FAERS Safety Report 4374671-2 (Version None)
Quarter: 2004Q2

REPORT INFORMATION
  Report Type: 
  Country: None (occurrence: None)
  Receive Date: 20040604
  Receipt Date: 20040523
  Transmission Date: 20050107
  Serious: Yes (Other)
  Sender: FDA-Public Use
  Company Number: 2004035284

PATIENT

DRUGS (2)
  1. LIPITOR [Suspect]
     Indication: ILL-DEFINED DISORDER
  2. ALLOPURINOL [Suspect]
     Indication: ILL-DEFINED DISORDER

REACTIONS (1)
  - HAEMORRHAGE [None]
